FAERS Safety Report 8845722 (Version 5)
Quarter: 2013Q2

REPORT INFORMATION
  Report Type: Spontaneous
  Country: US (occurrence: US)
  Receive Date: 20121017
  Receipt Date: 20130411
  Transmission Date: 20140414
  Serious: Yes (Hospitalization, Other)
  Sender: FDA-Public Use
  Company Number: US-009507513-1205USA00716

PATIENT
  Sex: Female

DRUGS (7)
  1. FOSAMAX [Suspect]
     Indication: OSTEOPOROSIS
     Dosage: 10 MG,QD
     Route: 048
     Dates: start: 1999, end: 200811
  2. FOSAMAX [Suspect]
     Dosage: 70 MG, QW
     Route: 048
     Dates: start: 1999, end: 200811
  3. RECLAST [Suspect]
     Indication: OSTEOPOROSIS
     Dosage: UNK
     Dates: start: 2009
  4. FOLIC ACID [Concomitant]
     Dosage: 100 MG,QD
     Dates: start: 1990
  5. CALCIUM (UNSPECIFIED) [Concomitant]
     Dosage: 600 MG, QD
     Dates: start: 1990
  6. VITAMINS (UNSPECIFIED) [Concomitant]
     Dosage: UNK, QD
     Dates: start: 1990, end: 2000
  7. OCUVITE PRESERVISION [Concomitant]
     Dosage: 200 MG, QD
     Dates: start: 2000

REACTIONS (42)
  - Femur fracture [Unknown]
  - Femur fracture [Unknown]
  - Intramedullary rod insertion [Unknown]
  - Intramedullary rod insertion [Unknown]
  - Prothrombin time prolonged [Recovered/Resolved]
  - Lung operation [Unknown]
  - International normalised ratio increased [Unknown]
  - International normalised ratio increased [Recovered/Resolved]
  - Rib excision [Unknown]
  - Clavicle fracture [Unknown]
  - Tonsillectomy [Unknown]
  - Fall [Unknown]
  - Uterine dilation and curettage [Unknown]
  - Transfusion [Unknown]
  - Depression [Not Recovered/Not Resolved]
  - Anxiety [Unknown]
  - Medical device removal [Unknown]
  - Electrocardiogram ST-T change [Unknown]
  - Supraventricular extrasystoles [Unknown]
  - Thrombophlebitis [Unknown]
  - Bundle branch block left [Unknown]
  - Confusion postoperative [Unknown]
  - Left ventricular hypertrophy [Unknown]
  - Atrial fibrillation [Not Recovered/Not Resolved]
  - Osteopenia [Unknown]
  - QRS axis abnormal [Unknown]
  - Chest pain [Unknown]
  - Deep vein thrombosis [Unknown]
  - Empyema [Unknown]
  - Cataract [Unknown]
  - Cataract operation [Unknown]
  - Ankle fracture [Unknown]
  - Ankle operation [Unknown]
  - Urine output decreased [Unknown]
  - Fall [Unknown]
  - Acute sinusitis [Unknown]
  - Nasal septum deviation [Unknown]
  - Facial bones fracture [Unknown]
  - Back pain [Not Recovered/Not Resolved]
  - Arthralgia [Not Recovered/Not Resolved]
  - Constipation [Unknown]
  - Drug hypersensitivity [Unknown]
